FAERS Safety Report 19579304 (Version 1)
Quarter: 2021Q3

REPORT INFORMATION
  Report Type: Spontaneous
  Country: US (occurrence: US)
  Receive Date: 20210719
  Receipt Date: 20210719
  Transmission Date: 20211014
  Serious: Yes (Other)
  Sender: FDA-Public Use
  Company Number: US-ANIPHARMA-2021-US-013946

PATIENT
  Age: 43 Year
  Sex: Male

DRUGS (2)
  1. AMIODARONE [Concomitant]
     Active Substance: AMIODARONE
  2. PROCAINAMIDE HCL (NON?SPECIFIC) [Suspect]
     Active Substance: PROCAINAMIDE HYDROCHLORIDE
     Indication: ARRHYTHMIA

REACTIONS (3)
  - Influenza like illness [Unknown]
  - Seizure [Unknown]
  - Tremor [Unknown]
